FAERS Safety Report 10442300 (Version 1)
Quarter: 2014Q3

REPORT INFORMATION
  Report Type: Report from Study
  Country: US (occurrence: US)
  Receive Date: 20140909
  Receipt Date: 20140909
  Transmission Date: 20150326
  Serious: Yes (Other)
  Sender: FDA-Public Use
  Company Number: US-US-EMD SERONO, INC.-7319030

PATIENT
  Age: 51 Year
  Sex: Female

DRUGS (1)
  1. REBIF [Suspect]
     Active Substance: INTERFERON BETA-1A
     Indication: MULTIPLE SCLEROSIS

REACTIONS (5)
  - Vaginal haemorrhage [Unknown]
  - Cytology abnormal [Unknown]
  - Fatigue [Not Recovered/Not Resolved]
  - Breast cancer female [Unknown]
  - Stress [Unknown]

NARRATIVE: CASE EVENT DATE: 2010
